FAERS Safety Report 6607832-X (Version None)
Quarter: 2010Q1

REPORT INFORMATION
  Report Type: 
  Country: None (occurrence: None)
  Receive Date: 20100225
  Receipt Date: 20100225
  Transmission Date: 20100710
  Serious: Yes (Disabling, Other)
  Sender: FDA-Public Use
  Company Number: None

PATIENT
  Sex: Female
  Weight: 81.6475 kg

DRUGS (1)
  1. RECLAST [Suspect]
     Indication: OSTEOPOROSIS
     Dosage: 5 MG X1 IV LOOKING AT TIME ON WALL CLOCK 3 1/2 MINS
     Route: 042
     Dates: start: 20091207

REACTIONS (12)
  - ARTHRALGIA [None]
  - CHILLS [None]
  - ERYTHEMA [None]
  - FINGER DEFORMITY [None]
  - IMPAIRED WORK ABILITY [None]
  - JOINT SWELLING [None]
  - LOOSE TOOTH [None]
  - OEDEMA PERIPHERAL [None]
  - PAIN OF SKIN [None]
  - PYREXIA [None]
  - SKIN CHAPPED [None]
  - SKIN EXFOLIATION [None]
